FAERS Safety Report 9549934 (Version 1)
Quarter: 2013Q3

REPORT INFORMATION
  Report Type: Spontaneous
  Country: US (occurrence: US)
  Receive Date: 20130924
  Receipt Date: 20130924
  Transmission Date: 20140515
  Serious: Yes (Death)
  Sender: FDA-Public Use
  Company Number: US-ROCHE-1279906

PATIENT
  Sex: Female

DRUGS (6)
  1. ZELBORAF [Suspect]
     Indication: MALIGNANT MELANOMA
     Route: 048
  2. BELLADONNA [Concomitant]
  3. MIRTAZAPINE [Concomitant]
  4. ZOFRAN [Concomitant]
  5. DOXYCYCLINE [Concomitant]
  6. ALPRAZOLAM [Concomitant]

REACTIONS (1)
  - Disease progression [Fatal]
